FAERS Safety Report 10470046 (Version 1)
Quarter: 2014Q3

REPORT INFORMATION
  Report Type: Spontaneous
  Country: US (occurrence: US)
  Receive Date: 20140923
  Receipt Date: 20140923
  Transmission Date: 20150326
  Serious: No
  Sender: FDA-Public Use
  Company Number: US-SHIONOGI, INC-2014000832

PATIENT
  Sex: Female

DRUGS (1)
  1. OSPHENA [Suspect]
     Active Substance: OSPEMIFENE
     Indication: DYSPAREUNIA
     Dosage: 60 MG, QD
     Route: 048
     Dates: start: 20140615, end: 20130805

REACTIONS (3)
  - Hot flush [Recovering/Resolving]
  - Chills [Recovering/Resolving]
  - Pain of skin [Recovered/Resolved]

NARRATIVE: CASE EVENT DATE: 2014
